FAERS Safety Report 7858701-9 (Version None)
Quarter: 2011Q3

REPORT INFORMATION
  Report Type: 
  Country: None (occurrence: None)
  Receive Date: 20110923
  Receipt Date: 20100104
  Transmission Date: 20111222
  Serious: Yes (Hospitalization, Other)
  Sender: FDA-Public Use
  Company Number: 10-001

PATIENT
  Sex: Female

DRUGS (1)
  1. CANDIDA ALBICANS [Suspect]
     Indication: HYPERSENSITIVITY
     Dosage: SUBCUTANEOUS
     Route: 058
     Dates: start: 20091101, end: 20091201

REACTIONS (3)
  - ERYTHEMA [None]
  - INFLUENZA LIKE ILLNESS [None]
  - SWELLING [None]
